FAERS Safety Report 4910773-7 (Version None)
Quarter: 2006Q1

REPORT INFORMATION
  Report Type: 
  Country: None (occurrence: None)
  Receive Date: 20060214
  Receipt Date: 20060203
  Transmission Date: 20060701
  Serious: Yes (Death)
  Sender: FDA-Public Use
  Company Number: US-JNJFOC-20060201954

PATIENT
  Sex: Female
  Weight: 58.97 kg

DRUGS (1)
  1. ULTRAM [Suspect]
     Indication: PAIN

REACTIONS (1)
  - DEATH [None]
